FAERS Safety Report 15240231 (Version 1)
Quarter: 2018Q3

REPORT INFORMATION
  Report Type: Spontaneous
  Country: TH (occurrence: TH)
  Receive Date: 20180804
  Receipt Date: 20180804
  Transmission Date: 20181010
  Serious: Yes (Hospitalization, Other)
  Sender: FDA-Public Use
  Company Number: TH-BION-007337

PATIENT
  Age: 60 Year
  Sex: Female

DRUGS (4)
  1. COLCHICINE. [Suspect]
     Active Substance: COLCHICINE
     Indication: RAYNAUD^S PHENOMENON
  2. NAPROXEN SODIUM UNKNOWN PRODUCT [Suspect]
     Active Substance: NAPROXEN SODIUM
     Indication: RAYNAUD^S PHENOMENON
  3. ACETYLSALICYLIC ACID [Suspect]
     Active Substance: ASPIRIN
     Indication: RAYNAUD^S PHENOMENON
  4. NIFEDIPINE. [Suspect]
     Active Substance: NIFEDIPINE
     Indication: RAYNAUD^S PHENOMENON

REACTIONS (2)
  - Toxic epidermal necrolysis [Unknown]
  - Acute cutaneous lupus erythematosus [Unknown]
